FAERS Safety Report 18297021 (Version 4)
Quarter: 2020Q4

REPORT INFORMATION
  Report Type: Spontaneous
  Country: JP (occurrence: JP)
  Receive Date: 20200922
  Receipt Date: 20201209
  Transmission Date: 20210113
  Serious: Yes (Other)
  Sender: FDA-Public Use
  Company Number: JP-ALLERGAN-2030516US

PATIENT
  Sex: Female

DRUGS (4)
  1. EBRANTIL [Suspect]
     Active Substance: URAPIDIL
     Dosage: 30 G
     Route: 048
     Dates: start: 20200608, end: 20200624
  2. BOTOX [Suspect]
     Active Substance: ONABOTULINUMTOXINA
     Indication: HYPERTONIC BLADDER
     Dosage: 100 UNITS, SINGLE
     Route: 030
     Dates: start: 20200527, end: 20200527
  3. EBRANTIL [Suspect]
     Active Substance: URAPIDIL
     Indication: DYSURIA
     Dosage: UNK, QD
     Route: 048
     Dates: start: 20200722
  4. CRAVIT [Suspect]
     Active Substance: LEVOFLOXACIN
     Indication: URINARY TRACT INFECTION
     Dosage: UNK
     Route: 048
     Dates: start: 20200713, end: 20200826

REACTIONS (10)
  - Urinary tract infection [Recovered/Resolved]
  - Cystitis [Recovering/Resolving]
  - Diarrhoea [Recovered/Resolved]
  - Dysuria [Recovering/Resolving]
  - Pyrexia [Recovered/Resolved]
  - Residual urine volume increased [Recovering/Resolving]
  - Drug-induced liver injury [Recovered/Resolved]
  - Hepatic function abnormal [Recovering/Resolving]
  - Bladder catheter temporary [Recovering/Resolving]
  - Malaise [Recovering/Resolving]

NARRATIVE: CASE EVENT DATE: 202006
